FAERS Safety Report 9781003 (Version 3)
Quarter: 2014Q2

REPORT INFORMATION
  Report Type: Report from Study
  Country: US (occurrence: US)
  Receive Date: 20131224
  Receipt Date: 20140428
  Transmission Date: 20141212
  Serious: Yes (Hospitalization)
  Sender: FDA-Public Use
  Company Number: US-SA-2013SA131191

PATIENT
  Age: 63 Year
  Sex: Female
  Weight: 118 kg

DRUGS (1)
  1. AUBAGIO [Suspect]
     Indication: MULTIPLE SCLEROSIS
     Route: 048
     Dates: start: 20131109

REACTIONS (2)
  - Trigeminal nerve disorder [Recovered/Resolved]
  - Diarrhoea [Not Recovered/Not Resolved]
